FAERS Safety Report 4930999-6 (Version None)
Quarter: 2006Q1

REPORT INFORMATION
  Report Type: 
  Country: None (occurrence: None)
  Receive Date: 20060227
  Receipt Date: 20060214
  Transmission Date: 20060701
  Serious: Yes (Other)
  Sender: FDA-Public Use
  Company Number: 2006020997

PATIENT
  Sex: Male

DRUGS (1)
  1. NEOSPORIN [Suspect]
     Dosage: UNSPECIFIED; TOPICAL
     Route: 061

REACTIONS (2)
  - SWELLING FACE [None]
  - WHEEZING [None]
